FAERS Safety Report 9954471 (Version 2)
Quarter: 2014Q1

REPORT INFORMATION
  Report Type: Report from Study
  Country: US (occurrence: US)
  Receive Date: 20140304
  Receipt Date: 20140304
  Transmission Date: 20141002
  Serious: No
  Sender: FDA-Public Use
  Company Number: US-ABBVIE-13P-163-1048513-00

PATIENT
  Age: 50 Year
  Sex: Female

DRUGS (6)
  1. HUMIRA [Suspect]
     Indication: RHEUMATOID ARTHRITIS
     Dates: start: 20121129, end: 20121228
  2. METHOTREXATE [Concomitant]
     Indication: PRODUCT USED FOR UNKNOWN INDICATION
     Dosage: 2.5MG X 2 EVERY FRIDAY AND 2 EVERY SATURDAY
  3. FOLIC ACID [Concomitant]
     Indication: PRODUCT USED FOR UNKNOWN INDICATION
  4. ARAVA [Concomitant]
     Indication: RHEUMATOID ARTHRITIS
  5. HYDROCODONE [Concomitant]
     Indication: ARTHRALGIA
     Dosage: 5/500 AS REQUIRED
  6. PANTOPRAZOLE SODIUM [Concomitant]
     Indication: GASTRIC DISORDER
     Dosage: EVERY MORNING

REACTIONS (17)
  - Back pain [Recovering/Resolving]
  - Back pain [Recovering/Resolving]
  - Hot flush [Recovering/Resolving]
  - Respiratory tract congestion [Recovering/Resolving]
  - Malaise [Recovering/Resolving]
  - Ear disorder [Recovering/Resolving]
  - Lower respiratory tract infection [Recovering/Resolving]
  - Nasopharyngitis [Recovering/Resolving]
  - Ear pain [Recovering/Resolving]
  - Blood pressure increased [Recovering/Resolving]
  - Hearing impaired [Recovering/Resolving]
  - Ear haemorrhage [Recovering/Resolving]
  - Ear disorder [Recovering/Resolving]
  - Cyst [Recovering/Resolving]
  - Cyst drainage [Recovering/Resolving]
  - Smear cervix abnormal [Unknown]
  - Lymph gland infection [Unknown]
